FAERS Safety Report 10071112 (Version 1)
Quarter: 2014Q2

REPORT INFORMATION
  Report Type: Report from Study
  Country: MX (occurrence: MX)
  Receive Date: 20140410
  Receipt Date: 20140410
  Transmission Date: 20141212
  Serious: Yes (Death)
  Sender: FDA-Public Use
  Company Number: PHHY2014MX042294

PATIENT
  Age: 86 Year
  Sex: Male

DRUGS (3)
  1. ONBREZ [Suspect]
     Indication: ASTHMA
     Dosage: 2 DF, DAILY
     Route: 055
  2. ONBREZ [Suspect]
     Indication: OFF LABEL USE
     Dosage: 1 DF, DAILY
     Route: 055
  3. OXYGEN [Concomitant]
     Dosage: UNK UKN, UNK

REACTIONS (7)
  - Overdose [Fatal]
  - Myocardial infarction [Fatal]
  - Renal failure [Fatal]
  - Pulmonary oedema [Fatal]
  - Myocarditis [Fatal]
  - Fatigue [Fatal]
  - Pulmonary function test decreased [Fatal]
